FAERS Safety Report 9696058 (Version 1)
Quarter: 2013Q4

REPORT INFORMATION
  Report Type: Spontaneous
  Country: CA (occurrence: CA)
  Receive Date: 20131119
  Receipt Date: 20131119
  Transmission Date: 20140711
  Serious: Yes (Other)
  Sender: FDA-Public Use
  Company Number: CA-B.I. PHARMACEUTICALS,INC./RIDGEFIELD-2013-BI-37354CN

PATIENT
  Age: 71 Year
  Sex: Female
  Weight: 68 kg

DRUGS (8)
  1. TRAJENTA [Suspect]
     Dosage: 5 MG
     Route: 048
  2. ASPIRIN [Concomitant]
  3. EZETROL [Concomitant]
  4. LIPITOR [Concomitant]
  5. METFORMIN [Concomitant]
  6. RAN-RAMIPRIL [Concomitant]
  7. SANDOZ AMLODIPINE [Concomitant]
  8. SYNTHROID [Concomitant]

REACTIONS (5)
  - Abdominal pain upper [Not Recovered/Not Resolved]
  - Frequent bowel movements [Not Recovered/Not Resolved]
  - Asthenia [Not Recovered/Not Resolved]
  - Nausea [Not Recovered/Not Resolved]
  - Weight decreased [Not Recovered/Not Resolved]
